FAERS Safety Report 6211857-6 (Version None)
Quarter: 2009Q2

REPORT INFORMATION
  Report Type: 
  Country: None (occurrence: None)
  Receive Date: 20090528
  Receipt Date: 20090521
  Transmission Date: 20091009
  Serious: Yes (Hospitalization)
  Sender: FDA-Public Use
  Company Number: WAES 0905USA03181

PATIENT
  Age: 71 Year
  Sex: Male

DRUGS (2)
  1. DECADRON [Suspect]
     Indication: MULTIPLE MYELOMA
  2. ENZASTAURIN HYDROCHLORIDE [Suspect]
     Indication: MULTIPLE MYELOMA

REACTIONS (3)
  - HAND FRACTURE [None]
  - LIMB INJURY [None]
  - WOUND [None]
